FAERS Safety Report 9510505 (Version 2)
Quarter: 2013Q3

REPORT INFORMATION
  Report Type: Spontaneous
  Country: JP (occurrence: JP)
  Receive Date: 20130909
  Receipt Date: 20130909
  Transmission Date: 20140515
  Serious: Yes (Hospitalization)
  Sender: FDA-Public Use
  Company Number: JP-ELI_LILLY_AND_COMPANY-JP201307011163

PATIENT
  Age: 71 Year
  Sex: Male
  Weight: 46.6 kg

DRUGS (7)
  1. ALIMTA [Suspect]
     Indication: LUNG ADENOCARCINOMA STAGE IV
     Dosage: 722 MG, OTHER
     Route: 042
     Dates: start: 20130725
  2. CISPLATIN [Concomitant]
     Indication: LUNG ADENOCARCINOMA STAGE IV
     Dosage: 108 MG, OTHER
     Route: 042
     Dates: start: 20130725
  3. DEPAKENE-R [Concomitant]
     Dosage: 400 MG, BID
     Route: 048
     Dates: start: 20130705
  4. RINDERON                           /00008504/ [Concomitant]
     Dosage: 1 MG, BID
     Route: 048
     Dates: start: 20130705
  5. PANVITAN                           /00466101/ [Concomitant]
     Dosage: 1 G, UNK
     Route: 048
     Dates: start: 20130718
  6. FRESMIN S [Concomitant]
     Dosage: 1000 UG, UNK
     Route: 030
     Dates: start: 20130718
  7. EMEND                              /01627301/ [Concomitant]
     Dosage: UNK
     Route: 042
     Dates: start: 20130728

REACTIONS (1)
  - Prinzmetal angina [Recovering/Resolving]
